FAERS Safety Report 7437130-6 (Version None)
Quarter: 2011Q2

REPORT INFORMATION
  Report Type: 
  Country: None (occurrence: None)
  Receive Date: 20110426
  Receipt Date: 20110418
  Transmission Date: 20111010
  Serious: Yes (Hospitalization, Other)
  Sender: FDA-Public Use
  Company Number: PL-SANOFI-AVENTIS-2010SA077328

PATIENT
  Age: 61 Year
  Sex: Male

DRUGS (2)
  1. TERTENSIF - SLOW RELEASE [Suspect]
     Route: 048
     Dates: start: 20050101, end: 20090908
  2. TERTENSIF - SLOW RELEASE [Suspect]
     Indication: HYPERTENSION
     Route: 048
     Dates: start: 20040128, end: 20040618

REACTIONS (7)
  - PAIN IN EXTREMITY [None]
  - EYE SWELLING [None]
  - BLOOD PRESSURE DECREASED [None]
  - TRANSIENT GLOBAL AMNESIA [None]
  - BLOOD GLUCOSE ABNORMAL [None]
  - OEDEMA PERIPHERAL [None]
  - BRAIN OEDEMA [None]
